FAERS Safety Report 15376361 (Version 2)
Quarter: 2018Q3

REPORT INFORMATION
  Report Type: Report from Study
  Country: US (occurrence: US)
  Receive Date: 20180912
  Receipt Date: 20180926
  Transmission Date: 20181010
  Serious: Yes (Hospitalization, Other)
  Sender: FDA-Public Use
  Company Number: US-INCYTE CORPORATION-2018IN009059

PATIENT

DRUGS (1)
  1. JAKAFI [Suspect]
     Active Substance: RUXOLITINIB
     Indication: MYELOFIBROSIS
     Dosage: 5 MG, QD
     Route: 048
     Dates: start: 20180319, end: 20180823

REACTIONS (4)
  - Intra-abdominal fluid collection [Unknown]
  - Infection [Unknown]
  - Gastric infection [Unknown]
  - Inappropriate schedule of drug administration [Unknown]
